FAERS Safety Report 8804330 (Version 2)
Quarter: 2012Q4

REPORT INFORMATION
  Report Type: 
  Country: US (occurrence: US)
  Receive Date: 20120924
  Receipt Date: 20121003
  Transmission Date: 20130627
  Serious: Yes (Other)
  Sender: FDA-Public Use
  Company Number: US-BAYER-2012-097707

PATIENT
  Age: 35 Year
  Sex: Female

DRUGS (5)
  1. YAZ [Suspect]
     Dosage: UNK
  2. YASMIN [Suspect]
     Dosage: UNK
  3. OCELLA [Suspect]
     Dosage: UNK
  4. LISINOPRIL [Concomitant]
     Dosage: UNK
     Dates: start: 20100310
  5. TRICOR [Concomitant]
     Dosage: UNK
     Dates: start: 20100310

REACTIONS (2)
  - Thrombophlebitis superficial [None]
  - Injury [None]
